FAERS Safety Report 9478375 (Version 2)
Quarter: 2013Q3

REPORT INFORMATION
  Report Type: Report from Study
  Country: FR (occurrence: FR)
  Receive Date: 20130827
  Receipt Date: 20130827
  Transmission Date: 20140515
  Serious: Yes (Other)
  Sender: FDA-Public Use
  Company Number: FR-ASTELLAS-2012EU010390

PATIENT
  Age: 20 Year
  Sex: Female
  Weight: 44 kg

DRUGS (3)
  1. TACROLIMUS MR4 CAPSULES [Suspect]
     Indication: RENAL TRANSPLANT
     Dosage: 5 MG, UNKNOWN/D
     Route: 065
     Dates: start: 20110628
  2. TACROLIMUS MR4 CAPSULES [Suspect]
     Dosage: 1 MG, UNKNOWN/D
     Route: 065
  3. SIROLIMUS [Suspect]
     Indication: RENAL TRANSPLANT
     Dosage: UNK
     Route: 065

REACTIONS (1)
  - Expired drug administered [Not Recovered/Not Resolved]
